FAERS Safety Report 6360269-3 (Version None)
Quarter: 2009Q3

REPORT INFORMATION
  Report Type: 
  Country: None (occurrence: None)
  Receive Date: 20090917
  Receipt Date: 20090910
  Transmission Date: 20100115
  Serious: Yes (Hospitalization, Other)
  Sender: FDA-Public Use
  Company Number: US-PURDUE-USA-2009-0039015

PATIENT
  Sex: Female

DRUGS (5)
  1. MS CONTIN [Suspect]
     Indication: CANCER PAIN
     Dosage: UNK
     Dates: start: 20090101, end: 20090201
  2. NEURONTIN [Concomitant]
     Indication: NEURALGIA
     Dosage: 300 MG, TID
     Route: 048
     Dates: start: 20090513
  3. CYMBALTA [Concomitant]
     Indication: NEURALGIA
     Dosage: 60 MG, DAILY
     Route: 048
     Dates: start: 20090513
  4. LISINOPRIL [Concomitant]
     Indication: HYPERTENSION
     Dosage: 5 MG, DAILY
     Route: 048
  5. WARFARIN [Concomitant]
     Indication: DEEP VEIN THROMBOSIS
     Dosage: 5 MG, DAILY
     Route: 048

REACTIONS (3)
  - OEDEMA [None]
  - OEDEMA PERIPHERAL [None]
  - WEIGHT INCREASED [None]
